FAERS Safety Report 8536787 (Version 2)
Quarter: 2013Q1

REPORT INFORMATION
  Report Type: Spontaneous
  Country: US (occurrence: US)
  Receive Date: 20120430
  Receipt Date: 20130103
  Transmission Date: 20140127
  Serious: Yes (Hospitalization)
  Sender: FDA-Public Use
  Company Number: US-BAYER-2012-041555

PATIENT
  Age: 29 Year
  Sex: Female
  Weight: 99.77 kg

DRUGS (7)
  1. OCELLA [Suspect]
     Indication: PREMENSTRUAL SYNDROME
     Dosage: UNK
     Dates: start: 200807, end: 200903
  2. OCELLA [Suspect]
     Indication: CONTRACEPTION
     Dosage: UNK
     Dates: start: 200911, end: 200912
  3. YASMIN [Suspect]
     Indication: PREMENSTRUAL SYNDROME
     Dosage: UNK
     Dates: start: 200604, end: 200903
  4. YASMIN [Suspect]
     Indication: CONTRACEPTION
  5. ADVAIR DISKUS [Concomitant]
     Dosage: 250-50
     Dates: start: 20080820
  6. PROVENTIL HFA [Concomitant]
     Dosage: 90 ?G, UNK
     Route: 045
     Dates: start: 20080820, end: 20080926
  7. SINGULAIR [Concomitant]
     Dosage: 10 MG, UNK
     Route: 048
     Dates: start: 20080930

REACTIONS (5)
  - Gallbladder disorder [None]
  - Biliary dyskinesia [None]
  - Injury [None]
  - Pain [None]
  - General physical health deterioration [None]
